FAERS Safety Report 14699979 (Version 1)
Quarter: 2018Q1

REPORT INFORMATION
  Report Type: Spontaneous
  Country: US (occurrence: US)
  Receive Date: 20180329
  Receipt Date: 20180329
  Transmission Date: 20180509
  Serious: Yes (Hospitalization, Disabling)
  Sender: FDA-Public Use
  Company Number: None

PATIENT
  Age: 41 Year
  Sex: Female
  Weight: 97.2 kg

DRUGS (1)
  1. LUPRON [Suspect]
     Active Substance: LEUPROLIDE ACETATE
     Indication: ENDOMETRIOSIS
     Dosage: ?          OTHER FREQUENCY:EVERY MONTH;?
     Route: 058
     Dates: start: 20060301, end: 20060801

REACTIONS (7)
  - Arthralgia [None]
  - Myalgia [None]
  - Bedridden [None]
  - Drug ineffective [None]
  - Suicidal behaviour [None]
  - Fatigue [None]
  - Rash [None]

NARRATIVE: CASE EVENT DATE: 20180301
